FAERS Safety Report 8773926 (Version 1)
Quarter: 2012Q4

REPORT INFORMATION
  Report Type: 
  Country: US (occurrence: US)
  Receive Date: 20120907
  Receipt Date: 20120907
  Transmission Date: 20130627
  Serious: No
  Sender: FDA-Public Use
  Company Number: US-PFIZER INC-2012219948

PATIENT
  Age: 26 Year
  Sex: Female
  Weight: 61.22 kg

DRUGS (6)
  1. PRISTIQ [Suspect]
     Indication: MAJOR DEPRESSION
     Dosage: 150 mg, daily
     Dates: start: 2009, end: 201207
  2. PRISTIQ [Suspect]
     Indication: ANXIETY
  3. LEXAPRO [Concomitant]
     Dosage: 10 mg, 2x/day
  4. KLONOPIN [Concomitant]
     Dosage: 3 tablets daily
     Route: 048
  5. WELLBUTRIN [Concomitant]
     Dosage: UNK
  6. ATIVAN [Concomitant]
     Dosage: UNK

REACTIONS (1)
  - Feeling abnormal [Not Recovered/Not Resolved]
